FAERS Safety Report 12550273 (Version 2)
Quarter: 2016Q3

REPORT INFORMATION
  Report Type: Report from Study
  Country: BR (occurrence: BR)
  Receive Date: 20160712
  Receipt Date: 20160809
  Transmission Date: 20161109
  Serious: Yes (Death, Hospitalization)
  Sender: FDA-Public Use
  Company Number: PHHY2016BR094918

PATIENT
  Sex: Male
  Weight: 76 kg

DRUGS (1)
  1. EXJADE [Suspect]
     Active Substance: DEFERASIROX
     Indication: SICKLE CELL ANAEMIA
     Dosage: 25 MG/KG, QD (3 DISPERSIBLE TABLETS OF 500 MG AND 1 DISPERSIBLE TABLET OF 250 MG)
     Route: 065

REACTIONS (7)
  - Malaise [Unknown]
  - Death [Fatal]
  - Epistaxis [Unknown]
  - Volume blood decreased [Unknown]
  - Pneumonia [Unknown]
  - Fall [Unknown]
  - General physical health deterioration [Unknown]
